FAERS Safety Report 6894189-2 (Version None)
Quarter: 2010Q3

REPORT INFORMATION
  Report Type: 
  Country: None (occurrence: None)
  Receive Date: 20100802
  Receipt Date: 20100722
  Transmission Date: 20110219
  Serious: Yes (Other)
  Sender: FDA-Public Use
  Company Number: US-RANBAXY-2010US-36114

PATIENT

DRUGS (4)
  1. CALAN SR (VERAPAMIL) [Suspect]
     Indication: HYPERTENSION
     Dosage: 240 MG, UNK
     Route: 048
     Dates: start: 19880101
  2. VERAPAMIL [Suspect]
     Indication: HYPERTENSION
     Dosage: 240 MG
     Route: 048
     Dates: start: 20020101
  3. CADUET [Suspect]
     Indication: HYPERTENSION
     Dosage: 5 MG, UNK
     Route: 065
     Dates: start: 20050901
  4. DEPAKOTE [Suspect]
     Indication: SCHIZOPHRENIA
     Dosage: UNK
     Route: 065

REACTIONS (3)
  - HYPERTENSION [None]
  - SCHIZOPHRENIA [None]
  - WEIGHT INCREASED [None]
